FAERS Safety Report 6153589-9 (Version None)
Quarter: 2009Q2

REPORT INFORMATION
  Report Type: 
  Country: None (occurrence: None)
  Receive Date: 20090409
  Receipt Date: 20090402
  Transmission Date: 20091009
  Serious: Yes (Other)
  Sender: FDA-Public Use
  Company Number: 2009JP001699

PATIENT
  Age: 60 Year
  Sex: Female

DRUGS (1)
  1. PROGRAF [Suspect]
     Indication: LIVER TRANSPLANT
     Dates: end: 20040101

REACTIONS (6)
  - BILIARY ANASTOMOSIS COMPLICATION [None]
  - BIOPSY LIVER ABNORMAL [None]
  - CHOLANGITIS [None]
  - DISEASE PROGRESSION [None]
  - HEPATIC CIRRHOSIS [None]
  - PRECANCEROUS CELLS PRESENT [None]
